FAERS Safety Report 5010611-0 (Version None)
Quarter: 2006Q2

REPORT INFORMATION
  Report Type: 
  Country: None (occurrence: None)
  Receive Date: 20060524
  Receipt Date: 20060524
  Transmission Date: 20061013
  Serious: Yes (Hospitalization)
  Sender: FDA-Public Use
  Company Number: None

PATIENT
  Age: 45 Year
  Sex: Female
  Weight: 63.5036 kg

DRUGS (2)
  1. TOPAMAX [Suspect]
     Indication: MIGRAINE
     Dosage: 25MG    DAILY   PO
     Route: 048
     Dates: start: 20060501, end: 20060508
  2. TOPAMAX [Suspect]
     Indication: MIGRAINE
     Dosage: 25MG  BID   PO
     Route: 048
     Dates: start: 20060509, end: 20060509

REACTIONS (3)
  - ANGLE CLOSURE GLAUCOMA [None]
  - INTRAOCULAR PRESSURE INCREASED [None]
  - VISION BLURRED [None]
